FAERS Safety Report 14119661 (Version 2)
Quarter: 2017Q4

REPORT INFORMATION
  Report Type: Report from Study
  Country: US (occurrence: US)
  Receive Date: 20171024
  Receipt Date: 20171225
  Transmission Date: 20180321
  Serious: No
  Sender: FDA-Public Use
  Company Number: PHEH2017US034204

PATIENT
  Sex: Female

DRUGS (1)
  1. ILARIS [Suspect]
     Active Substance: CANAKINUMAB
     Indication: PRODUCT USED FOR UNKNOWN INDICATION
     Dosage: UNK
     Route: 065

REACTIONS (10)
  - Inappropriate schedule of drug administration [Unknown]
  - Swelling [Unknown]
  - Fluid retention [Unknown]
  - Dyspnoea [Unknown]
  - Adrenal disorder [Unknown]
  - Arthralgia [Unknown]
  - Weight increased [Unknown]
  - Blood potassium decreased [Recovered/Resolved]
  - Incorrect dose administered [Unknown]
  - Pyrexia [Unknown]
